FAERS Safety Report 9524701 (Version 1)
Quarter: 2013Q3

REPORT INFORMATION
  Report Type: Spontaneous
  Country: FR (occurrence: FR)
  Receive Date: 20130916
  Receipt Date: 20130916
  Transmission Date: 20140515
  Serious: Yes (Hospitalization)
  Sender: FDA-Public Use
  Company Number: PHHY2013FR101148

PATIENT
  Age: 59 Year
  Sex: Female

DRUGS (5)
  1. ACLASTA [Suspect]
     Indication: OSTEOPOROSIS
     Dosage: UNK UKN, UNK
     Route: 042
     Dates: start: 20090215
  2. ACLASTA [Suspect]
     Dosage: UNK UKN, UNK
     Route: 042
     Dates: start: 20100212
  3. PARIET [Concomitant]
     Dosage: UNK UKN, UNK
  4. DOLIPRANE [Concomitant]
     Dosage: UNK UKN, UNK
  5. XALATAN [Concomitant]
     Dosage: UNK UKN, UNK

REACTIONS (2)
  - Papillitis [Not Recovered/Not Resolved]
  - Visual acuity reduced [Not Recovered/Not Resolved]
